FAERS Safety Report 6644466-5 (Version None)
Quarter: 2010Q1

REPORT INFORMATION
  Report Type: 
  Country: None (occurrence: None)
  Receive Date: 20100319
  Receipt Date: 20100319
  Transmission Date: 20100710
  Serious: Yes (Hospitalization)
  Sender: FDA-Public Use
  Company Number: None

PATIENT
  Age: 61 Year
  Sex: Male
  Weight: 87 kg

DRUGS (4)
  1. INDOMETHACIN [Suspect]
     Indication: ARTHRALGIA
     Dosage: 50MG 1-2 TIMES/DAY PO, CHRONIC
     Route: 048
  2. COLCHICINE [Concomitant]
  3. POTASSIUM CHLORIDE [Concomitant]
  4. HYDROCHLOROTHIAZIDE [Concomitant]

REACTIONS (6)
  - ANAEMIA [None]
  - DIVERTICULUM INTESTINAL [None]
  - GASTRITIS EROSIVE [None]
  - GASTROINTESTINAL HAEMORRHAGE [None]
  - HYPOKALAEMIA [None]
  - OESOPHAGITIS [None]
